FAERS Safety Report 12036780 (Version 3)
Quarter: 2016Q2

REPORT INFORMATION
  Report Type: Spontaneous
  Country: CZ (occurrence: CZ)
  Receive Date: 20160208
  Receipt Date: 20160415
  Transmission Date: 20160815
  Serious: Yes (Death, Hospitalization, Disabling, Other)
  Sender: FDA-Public Use
  Company Number: CZ-CIPLA LTD.-2016CZ00793

PATIENT

DRUGS (3)
  1. TOPOTECAN [Suspect]
     Active Substance: TOPOTECAN\TOPOTECAN HYDROCHLORIDE
     Indication: OVARIAN CANCER
     Dosage: UNK
     Route: 065
     Dates: start: 201409
  2. PACLITAXEL. [Suspect]
     Active Substance: PACLITAXEL
     Indication: OVARIAN EPITHELIAL CANCER
     Dosage: UNK
     Route: 065
     Dates: start: 201402
  3. CARBOPLATIN. [Suspect]
     Active Substance: CARBOPLATIN
     Indication: OVARIAN EPITHELIAL CANCER
     Dosage: AUC 6, UNK
     Route: 065
     Dates: start: 201402

REACTIONS (8)
  - Disease progression [Fatal]
  - Fatigue [Unknown]
  - Visual acuity reduced [Unknown]
  - Pancytopenia [Unknown]
  - Asthenia [Unknown]
  - Protein total decreased [Unknown]
  - Febrile neutropenia [Unknown]
  - Diplopia [Unknown]
